FAERS Safety Report 6054626-2 (Version None)
Quarter: 2009Q1

REPORT INFORMATION
  Report Type: 
  Country: None (occurrence: None)
  Receive Date: 20090128
  Receipt Date: 20090116
  Transmission Date: 20090719
  Serious: Yes (Death)
  Sender: FDA-Public Use
  Company Number: US-RANBAXY-2009RR-20985

PATIENT
  Age: 47 Year
  Sex: Male

DRUGS (3)
  1. GABAPENTIN [Suspect]
     Indication: SUICIDAL IDEATION
     Route: 048
  2. BUPROPION HCL [Suspect]
     Indication: SUICIDAL IDEATION
     Route: 048
  3. QUETIAPINE FUMARATE [Suspect]
     Indication: SUICIDAL IDEATION
     Route: 048

REACTIONS (1)
  - SUICIDAL IDEATION [None]
